FAERS Safety Report 9124187 (Version 3)
Quarter: 2013Q3

REPORT INFORMATION
  Report Type: Spontaneous
  Country: US (occurrence: US)
  Receive Date: 20130227
  Receipt Date: 20130709
  Transmission Date: 20140515
  Serious: Yes (Hospitalization, Other)
  Sender: FDA-Public Use
  Company Number: US-PFIZER INC-2013066736

PATIENT
  Age: 46 Year
  Sex: Male
  Weight: 58.5 kg

DRUGS (3)
  1. XYNTHA [Suspect]
     Indication: PROPHYLAXIS
     Dosage: 80 UNK, 2X/WEEK
  2. XYNTHA [Suspect]
     Indication: HAEMOPHILIA
  3. XYNTHA [Suspect]
     Indication: FACTOR VIII DEFICIENCY

REACTIONS (3)
  - Disease complication [Unknown]
  - Haemorrhage [Unknown]
  - Joint injury [Unknown]
